FAERS Safety Report 10186342 (Version 2)
Quarter: 2014Q2

REPORT INFORMATION
  Report Type: Spontaneous
  Country: US (occurrence: US)
  Receive Date: 20140521
  Receipt Date: 20140611
  Transmission Date: 20141212
  Serious: No
  Sender: FDA-Public Use
  Company Number: US-ASTRAZENECA-2014SE13398

PATIENT
  Sex: Female
  Weight: 88 kg

DRUGS (6)
  1. PULMICORT FLEXHALER [Suspect]
     Indication: ASTHMA
     Route: 055
     Dates: start: 201402
  2. ALPRAZOLAM [Concomitant]
     Indication: ANXIETY
  3. ZYRTEC-D [Concomitant]
     Dosage: 5-120MG, TWO TIMES A DAY
  4. PRO AIR HFA 108 [Concomitant]
     Dosage: 2 PUFFS Q4 HOURS
  5. ZOLOFT [Concomitant]
  6. TRI-SPRINTEC [Concomitant]
     Dosage: 0.18/0.215/0.25MG-35MCG, DAILY

REACTIONS (4)
  - Dyspnoea [Unknown]
  - Feeling abnormal [Unknown]
  - Pharyngitis [Unknown]
  - Drug hypersensitivity [Unknown]
